FAERS Safety Report 6619156-5 (Version None)
Quarter: 2010Q1

REPORT INFORMATION
  Report Type: 
  Country: None (occurrence: None)
  Receive Date: 20100305
  Receipt Date: 20100305
  Transmission Date: 20100710
  Serious: No
  Sender: FDA-Public Use
  Company Number: None

PATIENT
  Age: 62 Year
  Sex: Male
  Weight: 240.7 kg

DRUGS (1)
  1. WARFARIN SODIUM [Suspect]
     Indication: DEEP VEIN THROMBOSIS
     Dosage: 10 MG EVERY DAY PO
     Route: 048
     Dates: start: 20090403, end: 20090805

REACTIONS (5)
  - BRONCHITIS CHRONIC [None]
  - DEHYDRATION [None]
  - EPISTAXIS [None]
  - HAEMOPTYSIS [None]
  - HAEMORRHAGE [None]
